FAERS Safety Report 17857550 (Version 1)
Quarter: 2020Q2

REPORT INFORMATION
  Report Type: Spontaneous
  Country: US (occurrence: US)
  Receive Date: 20200604
  Receipt Date: 20200604
  Transmission Date: 20200714
  Serious: No
  Sender: FDA-Public Use
  Company Number: US-AMGEN-USASL2020086281

PATIENT
  Age: 75 Year
  Sex: Female

DRUGS (1)
  1. OTEZLA [Suspect]
     Active Substance: APREMILAST
     Indication: PSORIASIS
     Dosage: 10 MG, 20 MG, 30 MG, BID
     Route: 048
     Dates: start: 20200519

REACTIONS (3)
  - Gastric disorder [Unknown]
  - Headache [Unknown]
  - Flank pain [Unknown]

NARRATIVE: CASE EVENT DATE: 202005
